FAERS Safety Report 20873942 (Version 1)
Quarter: 2022Q2

REPORT INFORMATION
  Report Type: Spontaneous
  Country: CN (occurrence: CN)
  Receive Date: 20220525
  Receipt Date: 20220525
  Transmission Date: 20220721
  Serious: Yes (Other)
  Sender: FDA-Public Use
  Company Number: CN-PFIZER INC-202200738926

PATIENT
  Age: 40 Year
  Sex: Male
  Weight: 59.9 kg

DRUGS (7)
  1. IDARUBICIN HYDROCHLORIDE [Suspect]
     Active Substance: IDARUBICIN HYDROCHLORIDE
     Indication: Acute leukaemia
     Dosage: 20 MG, 1X/DAY
     Route: 042
     Dates: start: 20220511, end: 20220513
  2. CYTARABINE [Suspect]
     Active Substance: CYTARABINE
     Indication: Acute leukaemia
     Dosage: 0.2 G, 1X/DAY
     Route: 041
     Dates: start: 20220511, end: 20220517
  3. DEXRAZOXANE [Suspect]
     Active Substance: DEXRAZOXANE
     Indication: Acute leukaemia
     Dosage: 500 MG, 1X/DAY
     Route: 041
     Dates: start: 20220511, end: 20220513
  4. SODIUM CHLORIDE [Concomitant]
     Active Substance: SODIUM CHLORIDE
     Indication: Vehicle solution use
     Dosage: 100 ML, 1X/DAY
     Route: 041
     Dates: start: 20220511, end: 20220513
  5. SODIUM CHLORIDE [Concomitant]
     Active Substance: SODIUM CHLORIDE
     Indication: Vehicle solution use
     Dosage: 500 ML, 1X/DAY
     Route: 041
     Dates: start: 20220511, end: 20220517
  6. SODIUM CHLORIDE [Concomitant]
     Active Substance: SODIUM CHLORIDE
     Indication: Vehicle solution use
     Dosage: 30 ML, 1X/DAY
     Route: 042
     Dates: start: 20220511, end: 20220513
  7. STERILE WATER [Concomitant]
     Active Substance: WATER
     Indication: Vehicle solution use
     Dosage: 10 ML, 1X/DAY
     Route: 042
     Dates: start: 20220511, end: 20220513

REACTIONS (1)
  - Platelet count decreased [Not Recovered/Not Resolved]

NARRATIVE: CASE EVENT DATE: 20220512
